FAERS Safety Report 9185284 (Version 1)
Quarter: 2013Q1

REPORT INFORMATION
  Report Type: Spontaneous
  Country: US (occurrence: None)
  Receive Date: 20130321
  Receipt Date: 20130321
  Transmission Date: 20140127
  Serious: Yes (Death, Hospitalization)
  Sender: FDA-Public Use
  Company Number: 2013AP003516

PATIENT
  Age: 38 Year
  Sex: Female

DRUGS (4)
  1. DIVALPROEX SODIUM DELAYED-RELEASE TABLETS [Suspect]
  2. PERPHENAZINE [Concomitant]
  3. CYCLOBENZAPRINE [Concomitant]
  4. SERTRALINE [Concomitant]

REACTIONS (6)
  - Hyperammonaemic encephalopathy [None]
  - Brain oedema [None]
  - Brain herniation [None]
  - Bradycardia [None]
  - Continuous haemodiafiltration [None]
  - Hepatomegaly [None]
